FAERS Safety Report 8917337 (Version 3)
Quarter: 2013Q1

REPORT INFORMATION
  Report Type: Spontaneous
  Country: GB (occurrence: GB)
  Receive Date: 20121120
  Receipt Date: 20130122
  Transmission Date: 20140127
  Serious: Yes (Other)
  Sender: FDA-Public Use
  Company Number: GB-B.I. PHARMACEUTICALS,INC./RIDGEFIELD-2012-UK-01775UK

PATIENT
  Age: 68 Year
  Sex: Male
  Weight: 78 kg

DRUGS (6)
  1. DABIGATRAN [Suspect]
     Indication: CEREBROVASCULAR ACCIDENT PROPHYLAXIS
     Dosage: 300 MG
     Dates: start: 20121031
  2. PERINDOPRIL [Concomitant]
     Indication: BLOOD PRESSURE
     Dosage: 8 MG
     Route: 048
  3. BISOPROLOL [Concomitant]
     Indication: ATRIAL FIBRILLATION
  4. ATORVASTATIN [Concomitant]
     Indication: BLOOD CHOLESTEROL
  5. DIGOXIN [Concomitant]
     Indication: CARDIAC DISORDER
  6. INHALERS [Concomitant]
     Indication: ASTHMA

REACTIONS (1)
  - Transient ischaemic attack [Recovered/Resolved]
